FAERS Safety Report 11111783 (Version 1)
Quarter: 2015Q2

REPORT INFORMATION
  Report Type: Spontaneous
  Country: US (occurrence: US)
  Receive Date: 20150514
  Receipt Date: 20150514
  Transmission Date: 20150821
  Serious: No
  Sender: FDA-Public Use
  Company Number: US-ASTRAZENECA-2015SE38611

PATIENT
  Sex: Male

DRUGS (1)
  1. BYDUREON [Suspect]
     Active Substance: EXENATIDE
     Route: 058

REACTIONS (7)
  - Injection site haemorrhage [Unknown]
  - Contusion [Unknown]
  - Injection site mass [Unknown]
  - Visual impairment [Unknown]
  - Pain in extremity [Unknown]
  - Injection site erythema [Unknown]
  - Device misuse [Unknown]
